FAERS Safety Report 9426318 (Version 1)
Quarter: 2013Q3

REPORT INFORMATION
  Report Type: Spontaneous
  Country: IT (occurrence: IT)
  Receive Date: 20130730
  Receipt Date: 20130730
  Transmission Date: 20140515
  Serious: Yes (Other)
  Sender: FDA-Public Use
  Company Number: IT-BRISTOL-MYERS SQUIBB COMPANY-18959643

PATIENT
  Age: 82 Year
  Sex: Female

DRUGS (5)
  1. COUMADIN TABS 5 MG [Suspect]
     Indication: DEEP VEIN THROMBOSIS
     Route: 048
     Dates: start: 20130411, end: 20130504
  2. CLEXANE [Suspect]
     Indication: DEEP VEIN THROMBOSIS
     Dosage: 8000 IU AXA/0.8ML INJECTION SOLUTION^
     Route: 058
     Dates: start: 20130409, end: 20130504
  3. TOTALIP [Concomitant]
     Dosage: 1DF=1UNIT
  4. NORVASC [Concomitant]
     Dosage: 1DF=5 MG TABLET, DOSAGE/1/UNIT
  5. COMBISARTAN [Concomitant]
     Dosage: 1DF= ^160+12.5 MG TAB^ DOSAGE/1/UNIT

REACTIONS (4)
  - Haematuria [Recovering/Resolving]
  - International normalised ratio increased [Recovering/Resolving]
  - Blood pressure increased [Recovering/Resolving]
  - Haemoglobin decreased [Recovering/Resolving]
